FAERS Safety Report 9761854 (Version 2)
Quarter: 2014Q1

REPORT INFORMATION
  Report Type: Spontaneous
  Country: US (occurrence: US)
  Receive Date: 20131216
  Receipt Date: 20140303
  Transmission Date: 20141002
  Serious: No
  Sender: FDA-Public Use
  Company Number: US-BIOGENIDEC-2013BI107608

PATIENT
  Age: 41 Year
  Sex: Female

DRUGS (24)
  1. TECFIDERA [Suspect]
     Indication: MULTIPLE SCLEROSIS
     Route: 048
     Dates: start: 201310
  2. TECFIDERA [Suspect]
     Indication: MULTIPLE SCLEROSIS
     Route: 048
  3. TECFIDERA [Suspect]
     Indication: MULTIPLE SCLEROSIS
     Route: 048
     Dates: start: 201311
  4. TECFIDERA [Suspect]
     Indication: MULTIPLE SCLEROSIS
     Route: 048
     Dates: start: 201311
  5. FOSAMAX [Concomitant]
  6. PREDNISONE [Concomitant]
  7. PANTOPRAZOLE SODIUM [Concomitant]
  8. ALLEGRA [Concomitant]
  9. KETOCONAZOLE [Concomitant]
  10. GABAPENTIN [Concomitant]
  11. MINOCYCLINE [Concomitant]
  12. DIAZEPAM [Concomitant]
  13. BACLOFEN [Concomitant]
  14. HYDROXYZINE HCL [Concomitant]
  15. TRAZODONE [Concomitant]
  16. TYLENOL EX-STR [Concomitant]
  17. MIRALAX [Concomitant]
  18. CALCIUM+D [Concomitant]
  19. GABITRIL [Concomitant]
  20. VESICARE [Concomitant]
  21. MICROGESTIN FE [Concomitant]
  22. GNP HYDROCORTISONE [Concomitant]
  23. TUMS CALCIUM [Concomitant]
  24. ASPIRIN BUFFERED [Concomitant]

REACTIONS (8)
  - Chest discomfort [Unknown]
  - Flushing [Not Recovered/Not Resolved]
  - Erythema [Unknown]
  - Rash [Unknown]
  - Abdominal pain [Unknown]
  - Abdominal discomfort [Not Recovered/Not Resolved]
  - Feeling hot [Not Recovered/Not Resolved]
  - Rash erythematous [Not Recovered/Not Resolved]
